FAERS Safety Report 7350964-1 (Version None)
Quarter: 2011Q1

REPORT INFORMATION
  Report Type: 
  Country: None (occurrence: None)
  Receive Date: 20110314
  Receipt Date: 20110309
  Transmission Date: 20110831
  Serious: Yes (Other)
  Sender: FDA-Public Use
  Company Number: US-ABBOTT-11P-163-0699303-00

PATIENT
  Age: 60 Year
  Sex: Female

DRUGS (5)
  1. LISINOPRIL [Concomitant]
     Indication: PRODUCT USED FOR UNKNOWN INDICATION
  2. HUMIRA [Suspect]
     Indication: RHEUMATOID ARTHRITIS
     Dates: start: 20100301, end: 20101101
  3. METFORMIN [Concomitant]
     Indication: PRODUCT USED FOR UNKNOWN INDICATION
  4. HUMIRA [Suspect]
     Indication: CROHN'S DISEASE
     Dates: start: 20110114
  5. LORTAB [Concomitant]
     Indication: PAIN
     Dosage: EVERY 6 HOURS AS NEEDED

REACTIONS (4)
  - DIARRHOEA [None]
  - ARTHRITIS [None]
  - ARTHRALGIA [None]
  - MUSCULOSKELETAL PAIN [None]
